FAERS Safety Report 7533152-5 (Version None)
Quarter: 2011Q2

REPORT INFORMATION
  Report Type: 
  Country: None (occurrence: None)
  Receive Date: 20110608
  Receipt Date: 20020906
  Transmission Date: 20111010
  Serious: Yes (Death)
  Sender: FDA-Public Use
  Company Number: PHBS2002CA05673

PATIENT
  Sex: Male

DRUGS (5)
  1. RISPERIDONE [Concomitant]
     Dosage: 1 MG, BID
     Route: 048
  2. CLOZAPINE [Suspect]
     Indication: SCHIZOPHRENIA
     Dosage: 450 MG, QD
     Route: 048
     Dates: start: 19940101
  3. COGENTIN [Concomitant]
     Dosage: 1 MG, PRN
     Route: 048
  4. ZOPICLONE [Concomitant]
     Dosage: 7.5 MG, QHS
     Route: 048
  5. LORAZEPAM [Concomitant]
     Dosage: 1 MG, PRN
     Route: 048

REACTIONS (2)
  - MYOCARDIAL INFARCTION [None]
  - SUDDEN DEATH [None]
